FAERS Safety Report 10185206 (Version 2)
Quarter: 2015Q1

REPORT INFORMATION
  Report Type: Spontaneous
  Country: US (occurrence: US)
  Receive Date: 20140521
  Receipt Date: 20140521
  Transmission Date: 20150720
  Serious: Yes (Hospitalization)
  Sender: FDA-Public Use
  Company Number: US-MYLANLABS-2014S1010956

PATIENT
  Age: 71 Year
  Sex: Female

DRUGS (4)
  1. LAMOTRIGINE. [Suspect]
     Active Substance: LAMOTRIGINE
     Indication: OFF LABEL USE
     Dosage: [DOSAGE UNKNOWN]
     Route: 048
  2. BUPROPION [Suspect]
     Active Substance: BUPROPION
     Indication: SUICIDE ATTEMPT
     Dosage: BUPROPION XL TABLETS [DOSAGE UNKNOWN]
     Route: 048
  3. LAMOTRIGINE. [Suspect]
     Active Substance: LAMOTRIGINE
     Indication: SUICIDE ATTEMPT
     Dosage: [DOSAGE UNKNOWN]
     Route: 048
  4. BUPROPION [Suspect]
     Active Substance: BUPROPION
     Indication: OFF LABEL USE
     Dosage: BUPROPION XL TABLETS [DOSAGE UNKNOWN]
     Route: 048

REACTIONS (4)
  - Status epilepticus [Recovered/Resolved]
  - Electrocardiogram QT prolonged [Unknown]
  - Intentional overdose [Recovered/Resolved]
  - Mental status changes [Unknown]
